FAERS Safety Report 7501511-2 (Version None)
Quarter: 2011Q2

REPORT INFORMATION
  Report Type: 
  Country: None (occurrence: None)
  Receive Date: 20110524
  Receipt Date: 20110511
  Transmission Date: 20111010
  Serious: Yes (Hospitalization, Other)
  Sender: FDA-Public Use
  Company Number: PHHY2011JP19840

PATIENT
  Sex: Male
  Weight: 65 kg

DRUGS (18)
  1. NEORAL [Suspect]
     Dosage: 20 MG
     Route: 048
     Dates: start: 20101015, end: 20101021
  2. EXJADE [Suspect]
     Dosage: 625 MG
     Route: 048
     Dates: start: 20100810, end: 20100830
  3. CIPROFLOXACIN HCL [Concomitant]
     Dosage: 600 MG, UNK
     Route: 048
     Dates: start: 20100803, end: 20101015
  4. EXJADE [Suspect]
     Indication: IRON OVERLOAD
     Dosage: 1500 MG
     Route: 048
     Dates: start: 20100803, end: 20100809
  5. LANSOPRAZOLE [Concomitant]
     Dosage: 15 MG, UNK
     Route: 048
     Dates: start: 20100803, end: 20101015
  6. EXJADE [Suspect]
     Dosage: 500 MG
     Route: 048
     Dates: start: 20100907, end: 20101015
  7. ZOLPIDEM [Concomitant]
     Dosage: 10 MG, UNK
     Route: 048
     Dates: start: 20100803, end: 20101015
  8. CEFEPIME HYDROCHLORIDE [Concomitant]
     Dosage: 1 G, UNK
     Dates: start: 20101005, end: 20101013
  9. NEORAL [Suspect]
     Indication: MYELODYSPLASTIC SYNDROME
     Dosage: 200 MG
     Route: 048
     Dates: start: 20100803, end: 20100927
  10. NEORAL [Suspect]
     Dosage: 50 MG
     Route: 048
     Dates: start: 20101009, end: 20101014
  11. DIFLUCAN [Concomitant]
     Dosage: 100 MG, UNK
     Route: 048
     Dates: start: 20100803, end: 20101015
  12. SULFAMETHOXAZOLE [Concomitant]
     Dosage: 80 MG, UNK
     Route: 048
     Dates: start: 20100803, end: 20101015
  13. MAGNESIUM OXIDE [Concomitant]
     Dosage: UNK
     Route: 048
     Dates: start: 20100921, end: 20100927
  14. ZITHROMAX [Concomitant]
     Dosage: 500 MG, UNK
     Dates: start: 20100810, end: 20100812
  15. ROHYPNOL [Concomitant]
     Dosage: 2 MG, UNK
     Route: 048
     Dates: start: 20100803, end: 20101015
  16. PRIMOBOLAN [Concomitant]
     Indication: MYELODYSPLASTIC SYNDROME
     Dosage: 10 MG, UNK
     Route: 048
     Dates: start: 20100914, end: 20101016
  17. EXJADE [Suspect]
     Dosage: 500 MG
     Route: 048
     Dates: start: 20100831, end: 20100906
  18. LOXONIN [Concomitant]
     Dosage: UNK
     Route: 048
     Dates: start: 20100812, end: 20100818

REACTIONS (3)
  - PYREXIA [None]
  - RENAL IMPAIRMENT [None]
  - UPPER RESPIRATORY TRACT INFLAMMATION [None]
